FAERS Safety Report 10234249 (Version 1)
Quarter: 2014Q1

REPORT INFORMATION
  Report Type: Spontaneous
  Country: US (occurrence: None)
  Receive Date: 20140306
  Receipt Date: 20140306
  Transmission Date: 20141002
  Serious: Yes (Hospitalization)
  Sender: FDA-Public Use
  Company Number: 163-21880-13120257

PATIENT
  Age: 62 Year
  Sex: Female

DRUGS (10)
  1. REVLIMID(LENALIDOMIDE) (25 MILLIGRAM, CAPSULES) [Suspect]
     Indication: PLASMA CELL MYELOMA
     Dosage: 21 IN 28 D, PO
     Route: 048
     Dates: start: 20131105
  2. GLIMEPIRIDE (GLIMEPIRIDE ) [Concomitant]
  3. DEXAMETHASONE (DEXAMETHASONE)(UNKNOWN) [Concomitant]
  4. ASPIRINE(ACETYLSALICYLIC ACID) (UNKNOWN) [Concomitant]
  5. VITAMIN B 12(VITAMIN B 12)(UNKNOWN) [Concomitant]
  6. DIOVAN(VALSARTAN)(UNKNOWN) [Concomitant]
  7. POTASSIUM(POTASSIUM)(UNKNOWN [Concomitant]
  8. FOLIC ACID(FOLIC ACID)(UNKNOWN) [Concomitant]
  9. PREDNISONE(PREDNISONE)(UNKNOWN) [Concomitant]
  10. AMLODIPINE(AMLODIPINE)(UNKNOWN) [Concomitant]

REACTIONS (1)
  - Bronchitis [None]
